FAERS Safety Report 8247432-1 (Version None)
Quarter: 2012Q1

REPORT INFORMATION
  Report Type: 
  Country: None (occurrence: None)
  Receive Date: 20120316
  Receipt Date: 20080929
  Transmission Date: 20120608
  Serious: Yes (Other)
  Sender: FDA-Public Use
  Company Number: PHEH2008US08710

PATIENT
  Sex: Female

DRUGS (4)
  1. TEKTURNA [Suspect]
     Dosage: UNK, UNK
  2. ACE INHIBITOR NOS (NO INGREDIENTS/SUBSTANCES) [Suspect]
     Dosage: UNK, UNK
  3. HYDROCHLOROTHIAZIDE [Suspect]
     Dosage: UNK, UNK
  4. BETA BLOCKING AGENTS (NO INGREDIENTS/SUBSTANCES) [Suspect]
     Dosage: UNK, UNK

REACTIONS (1)
  - HYPERKALAEMIA [None]
